FAERS Safety Report 18227533 (Version 1)
Quarter: 2020Q3

REPORT INFORMATION
  Report Type: Spontaneous
  Country: US (occurrence: US)
  Receive Date: 20200903
  Receipt Date: 20200903
  Transmission Date: 20201103
  Serious: Yes (Other)
  Sender: FDA-Public Use
  Company Number: None

PATIENT
  Age: 28 Year
  Sex: Female
  Weight: 58.97 kg

DRUGS (2)
  1. ALBUTEROL SULFATE INHALATION AEROSOL. [Suspect]
     Active Substance: ALBUTEROL SULFATE
     Indication: ASTHMA
     Route: 055
  2. INHALER ACTUATOR (TEVA) [Concomitant]

REACTIONS (3)
  - Product complaint [None]
  - Drug delivery system malfunction [None]
  - Product design issue [None]

NARRATIVE: CASE EVENT DATE: 20200831
